FAERS Safety Report 20063326 (Version 2)
Quarter: 2021Q4

REPORT INFORMATION
  Report Type: Spontaneous
  Country: US (occurrence: US)
  Receive Date: 20211112
  Receipt Date: 20211123
  Transmission Date: 20220304
  Serious: Yes (Hospitalization, Other)
  Sender: FDA-Public Use
  Company Number: US-MLMSERVICE-20211028-3192434-1

PATIENT
  Age: 68 Year
  Sex: Female

DRUGS (2)
  1. BEVACIZUMAB [Suspect]
     Active Substance: BEVACIZUMAB
     Indication: Ovarian cancer metastatic
     Dosage: 10 MG/KG, EVERY 2 WEEKS
     Route: 042
  2. DOXORUBICIN [Suspect]
     Active Substance: DOXORUBICIN
     Indication: Ovarian cancer metastatic
     Dosage: 30 MG/M2, EVERY 4 WEEKS, 5TH DOSE
     Route: 042

REACTIONS (9)
  - Thrombotic microangiopathy [Recovered/Resolved]
  - Renal tubular atrophy [Recovered/Resolved]
  - Nephrotic syndrome [Recovered/Resolved]
  - Acute kidney injury [Recovered/Resolved]
  - Left ventricular failure [Recovered/Resolved]
  - Nephropathy toxic [Recovered/Resolved]
  - Hypertensive emergency [Recovered/Resolved]
  - Posterior reversible encephalopathy syndrome [Recovered/Resolved]
  - Kidney fibrosis [Recovered/Resolved]
